FAERS Safety Report 8830910 (Version 3)
Quarter: 2013Q1

REPORT INFORMATION
  Report Type: Report from Study
  Country: BE (occurrence: BE)
  Receive Date: 20121008
  Receipt Date: 20130208
  Transmission Date: 20140127
  Serious: Yes (Other)
  Sender: FDA-Public Use
  Company Number: BE-BAYER-2012-100842

PATIENT
  Age: 53 Year
  Sex: 0
  Weight: 79.8 kg

DRUGS (5)
  1. SORAFENIB (RAF KINASE INHIBITOR) [Suspect]
     Indication: GASTROINTESTINAL STROMAL TUMOUR
     Dosage: 400 MG, BID
     Dates: start: 20100603
  2. SORAFENIB (RAF KINASE INHIBITOR) [Suspect]
     Indication: GASTROINTESTINAL STROMAL TUMOUR
     Dosage: DAILY DOSE 400 MG
     Dates: start: 201006
  3. SORAFENIB (RAF KINASE INHIBITOR) [Suspect]
     Indication: GASTROINTESTINAL STROMAL TUMOUR
     Dosage: DAILY DOSE 600 MG
  4. MAALOX [Concomitant]
  5. EMCORETIC [Concomitant]
     Dosage: 5 MG/25 MG

REACTIONS (9)
  - Retinal vein occlusion [Not Recovered/Not Resolved]
  - Visual impairment [Not Recovered/Not Resolved]
  - Vision blurred [Not Recovered/Not Resolved]
  - Palmar-plantar erythrodysaesthesia syndrome [None]
  - Inflammation [None]
  - Blister [None]
  - Hypertension [None]
  - Diarrhoea [None]
  - Off label use [None]
